FAERS Safety Report 7333312-2 (Version None)
Quarter: 2011Q1

REPORT INFORMATION
  Report Type: 
  Country: None (occurrence: None)
  Receive Date: 20110224
  Receipt Date: 20110208
  Transmission Date: 20110831
  Serious: Yes (Hospitalization)
  Sender: FDA-Public Use
  Company Number: DSA_44966_2011

PATIENT
  Age: 78 Year
  Sex: Female

DRUGS (4)
  1. ENALAPRIL MALEATE [Suspect]
     Indication: CARDIAC FAILURE
     Dosage: 10 MG QD ORAL
     Route: 048
     Dates: end: 20100719
  2. CLOZAPINE [Concomitant]
  3. ACETAMINOPHEN [Concomitant]
  4. MOVICOL /01625101/ [Concomitant]

REACTIONS (4)
  - URINARY TRACT INFECTION [None]
  - CHILLS [None]
  - BODY TEMPERATURE INCREASED [None]
  - HYPOTENSION [None]
